FAERS Safety Report 7132890-6 (Version None)
Quarter: 2010Q4

REPORT INFORMATION
  Report Type: 
  Country: None (occurrence: None)
  Receive Date: 20101117
  Receipt Date: 20101104
  Transmission Date: 20110411
  Serious: No
  Sender: FDA-Public Use
  Company Number: SPI201000241

PATIENT
  Age: 17 Year
  Sex: Female
  Weight: 63 kg

DRUGS (6)
  1. AMITIZA [Suspect]
     Indication: CONSTIPATION
     Dosage: 24 MCG, BID, ORAL
     Route: 048
     Dates: start: 20100101, end: 20100101
  2. MIRALAX [Concomitant]
  3. PROZAC 9FLUOXETINE HYDROCHLORIDE) [Concomitant]
  4. ONDANSETRON [Concomitant]
  5. TRAZODONE (TRAZODONE) [Concomitant]
  6. METOCLOPRAMIDE [Concomitant]

REACTIONS (3)
  - CHEST DISCOMFORT [None]
  - DYSPNOEA [None]
  - OFF LABEL USE [None]
